FAERS Safety Report 4378497-5 (Version None)
Quarter: 2004Q2

REPORT INFORMATION
  Report Type: 
  Country: None (occurrence: None)
  Receive Date: 20040609
  Receipt Date: 20040521
  Transmission Date: 20050107
  Serious: Yes (Hospitalization)
  Sender: FDA-Public Use
  Company Number: USA040568210

PATIENT
  Age: 53 Year
  Sex: Female

DRUGS (2)
  1. HUMULIN R [Suspect]
     Dates: start: 19970101
  2. INSULIN [Suspect]

REACTIONS (10)
  - ANAEMIA [None]
  - COELIAC DISEASE [None]
  - COMPRESSION FRACTURE [None]
  - DIARRHOEA [None]
  - DRUG INTOLERANCE [None]
  - HIP FRACTURE [None]
  - OSTEOPOROSIS [None]
  - OSTEOPOROTIC FRACTURE [None]
  - RIB FRACTURE [None]
  - SNEEZING [None]
